FAERS Safety Report 8395693-0 (Version None)
Quarter: 2012Q2

REPORT INFORMATION
  Report Type: 
  Country: None (occurrence: None)
  Receive Date: 20120530
  Receipt Date: 20120307
  Transmission Date: 20120825
  Serious: No
  Sender: FDA-Public Use
  Company Number: US-GLAXOSMITHKLINE-A0968982A

PATIENT
  Age: 66 Year
  Sex: Female

DRUGS (2)
  1. VENTOLIN [Suspect]
     Indication: BRONCHITIS
     Dosage: 2SPR FOUR TIMES PER DAY
     Route: 055
     Dates: start: 20120128
  2. ANTIBIOTIC [Concomitant]

REACTIONS (4)
  - ILL-DEFINED DISORDER [None]
  - CHOKING SENSATION [None]
  - PRODUCT QUALITY ISSUE [None]
  - DYSPNOEA [None]
